FAERS Safety Report 11404657 (Version 1)
Quarter: 2015Q3

REPORT INFORMATION
  Report Type: Spontaneous
  Country: CA (occurrence: CA)
  Receive Date: 20150821
  Receipt Date: 20150821
  Transmission Date: 20151125
  Serious: Yes (Other)
  Sender: FDA-Public Use
  Company Number: CA-TEVA-587547ACC

PATIENT
  Age: 62 Year
  Sex: Female
  Weight: 66 kg

DRUGS (2)
  1. PHYTOMATRIX [Concomitant]
  2. TRAZODONE [Suspect]
     Active Substance: TRAZODONE HYDROCHLORIDE
     Indication: INSOMNIA
     Route: 048

REACTIONS (13)
  - Palpitations [Recovering/Resolving]
  - Stomatitis [Recovering/Resolving]
  - Asthenia [Recovering/Resolving]
  - Flatulence [Recovering/Resolving]
  - Weight decreased [Recovering/Resolving]
  - Abdominal pain upper [Recovering/Resolving]
  - Chest discomfort [Recovering/Resolving]
  - Diarrhoea [Recovering/Resolving]
  - Insomnia [Recovering/Resolving]
  - Dyspepsia [Recovering/Resolving]
  - Heart rate increased [Recovering/Resolving]
  - Sinus arrhythmia [Recovering/Resolving]
  - Dizziness [Recovering/Resolving]
